FAERS Safety Report 7550705-9 (Version None)
Quarter: 2011Q2

REPORT INFORMATION
  Report Type: 
  Country: None (occurrence: None)
  Receive Date: 20110616
  Receipt Date: 20110613
  Transmission Date: 20111010
  Serious: Yes (Other)
  Sender: FDA-Public Use
  Company Number: US-ELI_LILLY_AND_COMPANY-US200812002402

PATIENT
  Sex: Male

DRUGS (7)
  1. GLYBURIDE [Concomitant]
     Dosage: UNK, UNKNOWN
     Route: 065
  2. PIOGLITAZONE [Concomitant]
     Dosage: UNK, UNKNOWN
     Route: 065
  3. LISINOPRIL [Concomitant]
     Dosage: UNK, UNKNOWN
     Route: 065
  4. METFORMIN HCL [Concomitant]
     Dosage: UNK, UNKNOWN
     Route: 065
  5. BYETTA [Suspect]
     Dosage: 10 UG, UNKNOWN
     Route: 065
     Dates: end: 20080630
  6. FUROSEMIDE [Concomitant]
     Dosage: UNK, UNKNOWN
     Route: 065
  7. GEMFIBROZIL [Concomitant]
     Dosage: UNK, UNKNOWN
     Route: 065

REACTIONS (3)
  - PANCREATITIS [None]
  - THYROID NEOPLASM [None]
  - GASTRITIS [None]
